FAERS Safety Report 23964569 (Version 1)
Quarter: 2024Q2

REPORT INFORMATION
  Report Type: Spontaneous
  Country: US (occurrence: US)
  Receive Date: 20240612
  Receipt Date: 20240612
  Transmission Date: 20240716
  Serious: No
  Sender: FDA-Public Use
  Company Number: US-PFIZER INC-202400191590

PATIENT
  Age: 70 Year
  Sex: Female

DRUGS (14)
  1. XELJANZ XR [Suspect]
     Active Substance: TOFACITINIB CITRATE
     Dosage: 11 MG
  2. XELJANZ XR [Suspect]
     Active Substance: TOFACITINIB CITRATE
     Dosage: 5 MG
  3. FOSAMAX [Concomitant]
     Active Substance: ALENDRONATE SODIUM
  4. PANTOPRAZOLE [Concomitant]
     Active Substance: PANTOPRAZOLE
  5. METOPROLOL [Concomitant]
     Active Substance: METOPROLOL
  6. MELATONIN [Concomitant]
     Active Substance: MELATONIN
  7. FERROUS SULFATE [Concomitant]
     Active Substance: FERROUS SULFATE
  8. EFFEXOR [Concomitant]
     Active Substance: VENLAFAXINE HYDROCHLORIDE
  9. VITAMIN D2 [Concomitant]
     Active Substance: ERGOCALCIFEROL
  10. XANAX [Concomitant]
     Active Substance: ALPRAZOLAM
  11. POTASSIUM [Concomitant]
     Active Substance: POTASSIUM
  12. CALCIUM\CHOLECALCIFEROL [Concomitant]
     Active Substance: CALCIUM\CHOLECALCIFEROL
  13. GABAPENTIN [Concomitant]
     Active Substance: GABAPENTIN
  14. TRAMADOL [Concomitant]
     Active Substance: TRAMADOL\TRAMADOL HYDROCHLORIDE

REACTIONS (1)
  - Drug ineffective [Unknown]
